FAERS Safety Report 9258678 (Version 1)
Quarter: 2013Q1

REPORT INFORMATION
  Report Type: Spontaneous
  Country: US (occurrence: None)
  Receive Date: 20121212
  Receipt Date: 20121212
  Transmission Date: 20140127
  Serious: No
  Sender: FDA-Public Use
  Company Number: 2012SP019668

PATIENT
  Age: 59 Year
  Sex: Male
  Weight: 10.9 kg

DRUGS (6)
  1. VICTRELIS (BOCEPREVIR) CAPSULE, 200 MG [Suspect]
     Route: 048
     Dates: start: 20120412
  2. REBETOL (RIBAVIRIN) CAPSULE [Suspect]
     Route: 048
  3. PEGASYS (PEGINTERFERON ALFA-2A) INJECTION [Suspect]
  4. FLOVENT HFA (FLUTICASONE PROPIONATE) [Concomitant]
  5. JANUVIA (SITAGLIPTIN PHOSPHATE) [Concomitant]
  6. TYLENOL (ACETAMINOPHEN) TABLET [Concomitant]

REACTIONS (6)
  - Faeces hard [None]
  - Mood swings [None]
  - Skin discolouration [None]
  - Asthenia [None]
  - Anaemia [None]
  - Rash [None]
